FAERS Safety Report 21125474 (Version 1)
Quarter: 2022Q3

REPORT INFORMATION
  Report Type: Spontaneous
  Country: US (occurrence: None)
  Receive Date: 20220722
  Receipt Date: 20220722
  Transmission Date: 20221027
  Serious: Yes (Other)
  Sender: FDA-Public Use
  Company Number: None

PATIENT
  Age: 73 Year
  Sex: Male
  Weight: 73.8 kg

DRUGS (6)
  1. VERZENIO [Suspect]
     Active Substance: ABEMACICLIB
     Indication: Breast cancer
     Dosage: FREQUENCY : EVERY 12 HOURS;?
     Route: 048
     Dates: start: 20220706, end: 20220706
  2. eziteme [Concomitant]
  3. FINASTERIDE [Concomitant]
     Active Substance: FINASTERIDE
  4. TAMOXIFEN [Concomitant]
     Active Substance: TAMOXIFEN
  5. PRAVASTATIN [Concomitant]
     Active Substance: PRAVASTATIN
  6. MUCINEX [Concomitant]
     Active Substance: GUAIFENESIN

REACTIONS (3)
  - Abdominal pain [None]
  - Rash [None]
  - Pulse abnormal [None]

NARRATIVE: CASE EVENT DATE: 20220706
